FAERS Safety Report 8979229 (Version 1)
Quarter: 2012Q4

REPORT INFORMATION
  Report Type: 
  Country: ES (occurrence: ES)
  Receive Date: 20121221
  Receipt Date: 20121221
  Transmission Date: 20130627
  Serious: Yes (Death)
  Sender: FDA-Public Use
  Company Number: ES-GLAXOSMITHKLINE-B0854291A

PATIENT
  Age: 31 Month
  Sex: Male

DRUGS (4)
  1. MELPHALAN [Suspect]
     Indication: BONE MARROW CONDITIONING REGIMEN
  2. FLUDARABINE [Suspect]
     Indication: BONE MARROW TRANSPLANT
  3. RABBIT ATG [Suspect]
     Indication: BONE MARROW TRANSPLANT
  4. CYCLOSPORIN [Concomitant]
     Indication: PROPHYLAXIS AGAINST GRAFT VERSUS HOST DISEASE

REACTIONS (10)
  - Pneumocystis jiroveci pneumonia [Fatal]
  - Pyrexia [Unknown]
  - Lymphadenopathy [Unknown]
  - Hepatosplenomegaly [Unknown]
  - Respiratory distress [Unknown]
  - Hypoxia [Unknown]
  - Lung infiltration [Unknown]
  - Lymphocytic infiltration [Unknown]
  - Eosinophilia [Unknown]
  - Condition aggravated [Unknown]
